FAERS Safety Report 8325875-5 (Version None)
Quarter: 2012Q2

REPORT INFORMATION
  Report Type: 
  Country: None (occurrence: None)
  Receive Date: 20120501
  Receipt Date: 20120420
  Transmission Date: 20120825
  Serious: No
  Sender: FDA-Public Use
  Company Number: US-BIOGENIDEC-2012BI013889

PATIENT
  Age: 47 Year
  Sex: Female

DRUGS (1)
  1. TYSABRI [Suspect]
     Indication: MULTIPLE SCLEROSIS
     Route: 042
     Dates: start: 20100430

REACTIONS (5)
  - INFUSION SITE ERYTHEMA [None]
  - ABDOMINAL PAIN UPPER [None]
  - MEMORY IMPAIRMENT [None]
  - VOMITING [None]
  - HYPOTENSION [None]
